FAERS Safety Report 23328603 (Version 2)
Quarter: 2024Q1

REPORT INFORMATION
  Report Type: Report from Study
  Country: GR (occurrence: GR)
  Receive Date: 20231221
  Receipt Date: 20240128
  Transmission Date: 20240410
  Serious: Yes (Death, Hospitalization, Other)
  Sender: FDA-Public Use
  Company Number: GR-ABBVIE-5551229

PATIENT
  Sex: Male

DRUGS (2)
  1. CARBIDOPA\LEVODOPA [Suspect]
     Active Substance: CARBIDOPA\LEVODOPA
     Indication: Parkinson^s disease
     Dosage: MORNING DOSE: 11.5ML; CONTINUOUS RATE: 2.0ML/H; EXTRA DOSE: 1.0ML
     Route: 050
     Dates: start: 20230425
  2. CARBIDOPA\LEVODOPA [Suspect]
     Active Substance: CARBIDOPA\LEVODOPA
     Dosage: MORNING DOSE: 11.5ML; CONTINUOUS RATE: 2.0ML/H; EXTRA DOSE: 1.0ML
     Route: 050

REACTIONS (5)
  - Neoplasm malignant [Fatal]
  - COVID-19 [Unknown]
  - Urinary tract infection [Unknown]
  - Cancer fatigue [Unknown]
  - Pyrexia [Unknown]

NARRATIVE: CASE EVENT DATE: 20230101
